FAERS Safety Report 6781449-9 (Version None)
Quarter: 2010Q2

REPORT INFORMATION
  Report Type: 
  Country: None (occurrence: None)
  Receive Date: 20100621
  Receipt Date: 20100614
  Transmission Date: 20101027
  Serious: Yes (Hospitalization)
  Sender: FDA-Public Use
  Company Number: FR-SANOFI-AVENTIS-200911166FR

PATIENT
  Age: 86 Year
  Sex: Female

DRUGS (6)
  1. LASIX [Suspect]
     Dosage: DOSE UNIT: 40 MG
     Route: 048
  2. LASIX [Suspect]
     Dosage: DOSE AS USED: REDUCED DOSE (NOS)
  3. RENITEC /NET/ [Suspect]
     Dosage: DOSE UNIT: 5 MG
     Route: 048
  4. LANZOR [Concomitant]
     Indication: DRUG USE FOR UNKNOWN INDICATION
     Route: 048
  5. FOSAMAX [Concomitant]
     Indication: DRUG USE FOR UNKNOWN INDICATION
     Route: 048
  6. SINTROM [Concomitant]
     Indication: DRUG USE FOR UNKNOWN INDICATION
     Route: 048

REACTIONS (2)
  - FALL [None]
  - FRACTURE [None]
